FAERS Safety Report 18316169 (Version 1)
Quarter: 2020Q3

REPORT INFORMATION
  Report Type: Spontaneous
  Country: US (occurrence: US)
  Receive Date: 20200927
  Receipt Date: 20200927
  Transmission Date: 20201103
  Serious: No
  Sender: FDA-Public Use
  Company Number: US-TOLMAR, INC.-20US022830

PATIENT
  Sex: Male

DRUGS (1)
  1. ELIGARD [Suspect]
     Active Substance: LEUPROLIDE ACETATE
     Indication: PROSTATE CANCER
     Dosage: 45 MG, FREQUENCY UNKNOWN
     Route: 058
     Dates: start: 20200914

REACTIONS (3)
  - Syringe issue [None]
  - Intercepted product preparation error [None]
  - Device leakage [None]

NARRATIVE: CASE EVENT DATE: 20200914
